FAERS Safety Report 10458850 (Version 1)
Quarter: 2014Q3

REPORT INFORMATION
  Report Type: Spontaneous
  Country: US (occurrence: US)
  Receive Date: 20140917
  Receipt Date: 20140917
  Transmission Date: 20150326
  Serious: Yes (Other)
  Sender: FDA-Public Use
  Company Number: US-MYLAN-2014M1004639

PATIENT

DRUGS (5)
  1. HALOPERIDOL DECANOATE. [Interacting]
     Active Substance: HALOPERIDOL DECANOATE
     Indication: AFFECTIVE DISORDER
     Route: 065
  2. LITHIUM [Suspect]
     Active Substance: LITHIUM CARBONATE
     Indication: AFFECTIVE DISORDER
     Dosage: EVERY MORNING
     Route: 065
  3. DIPHENHYDRAMINE [Concomitant]
     Active Substance: DIPHENHYDRAMINE
     Indication: AFFECTIVE DISORDER
     Route: 065
  4. HALOPERIDOL. [Concomitant]
     Active Substance: HALOPERIDOL
     Indication: AFFECTIVE DISORDER
     Route: 048
  5. LITHIUM [Interacting]
     Active Substance: LITHIUM CARBONATE
     Dosage: AT BEDTIME
     Route: 065

REACTIONS (8)
  - Suicidal ideation [Recovered/Resolved]
  - Tremor [Recovered/Resolved]
  - Neurotoxicity [Recovered/Resolved]
  - Salivary hypersecretion [Recovered/Resolved]
  - Drug interaction [Recovered/Resolved]
  - Agitation [Recovered/Resolved]
  - Disorientation [Recovered/Resolved]
  - Hyperreflexia [Recovered/Resolved]
